FAERS Safety Report 15082674 (Version 2)
Quarter: 2018Q3

REPORT INFORMATION
  Report Type: Report from Study
  Country: CA (occurrence: CA)
  Receive Date: 20180628
  Receipt Date: 20180813
  Transmission Date: 20181010
  Serious: Yes (Death, Hospitalization)
  Sender: FDA-Public Use
  Company Number: CA-HLSUS-2018-CA-000121

PATIENT
  Age: 57 Year
  Sex: Male

DRUGS (1)
  1. CLOZARIL [Suspect]
     Active Substance: CLOZAPINE
     Dosage: 25MG AND 100MG AT BEDTIME
     Route: 048
     Dates: start: 20060814, end: 20180514

REACTIONS (11)
  - Hepatic cirrhosis [Unknown]
  - Catheter site infection [Recovered/Resolved]
  - Upper gastrointestinal haemorrhage [Unknown]
  - Atrial fibrillation [Unknown]
  - Pneumonia [Unknown]
  - Intestinal ischaemia [Unknown]
  - Intestinal obstruction [Unknown]
  - Inguinal hernia [Unknown]
  - Septic shock [Fatal]
  - Constipation [Unknown]
  - Ascites [Unknown]

NARRATIVE: CASE EVENT DATE: 2014
